FAERS Safety Report 5133239-0 (Version None)
Quarter: 2006Q4

REPORT INFORMATION
  Report Type: 
  Country: None (occurrence: None)
  Receive Date: 20061018
  Receipt Date: 20061010
  Transmission Date: 20070319
  Serious: Yes (Other)
  Sender: FDA-Public Use
  Company Number: SPV1-2006-01118

PATIENT
  Age: 46 Year
  Sex: Male

DRUGS (4)
  1. CARBAMAZEPINE [Suspect]
     Indication: DRUG WITHDRAWAL SYNDROME
     Dosage: 1000 MG DAILY
  2. PAROXETIN /00830801/ (PAROXETINE) [Concomitant]
  3. LORAZEPAM [Concomitant]
  4. VENLAFAXINE HCL [Concomitant]

REACTIONS (7)
  - ANTICONVULSANT TOXICITY [None]
  - DRUG HYPERSENSITIVITY [None]
  - HALLUCINATION, AUDITORY [None]
  - HEPATOCELLULAR DAMAGE [None]
  - HEPATOTOXICITY [None]
  - PNEUMONIA [None]
  - SUICIDAL IDEATION [None]
